FAERS Safety Report 17356638 (Version 1)
Quarter: 2020Q1

REPORT INFORMATION
  Report Type: Spontaneous
  Country: US (occurrence: US)
  Receive Date: 20200131
  Receipt Date: 20200131
  Transmission Date: 20200409
  Serious: Yes (Hospitalization)
  Sender: FDA-Public Use
  Company Number: US-ELI_LILLY_AND_COMPANY-US202001010078

PATIENT
  Age: 26 Year
  Sex: Male

DRUGS (1)
  1. HUMALOG [Suspect]
     Active Substance: INSULIN LISPRO
     Indication: TYPE 1 DIABETES MELLITUS
     Dosage: 15 U, OTHER (BEFORE EACH MEAL)
     Route: 058
     Dates: start: 2019

REACTIONS (5)
  - Diabetic ketoacidosis [Unknown]
  - Influenza [Unknown]
  - Vomiting [Unknown]
  - Incorrect dose administered [Unknown]
  - Decreased appetite [Unknown]
